FAERS Safety Report 5896303-4 (Version None)
Quarter: 2008Q3

REPORT INFORMATION
  Report Type: 
  Country: None (occurrence: None)
  Receive Date: 20080924
  Receipt Date: 20071220
  Transmission Date: 20090109
  Serious: Yes (Other)
  Sender: FDA-Public Use
  Company Number: US-ASTRAZENECA-2007UW19276

PATIENT
  Age: 33 Year
  Sex: Female

DRUGS (3)
  1. SEROQUEL [Suspect]
     Indication: SLEEP DISORDER
     Dosage: 600 MG - 100 MG
     Route: 048
     Dates: start: 20020801, end: 20070101
  2. RISPERDAL [Concomitant]
     Dates: start: 20020601, end: 20020701
  3. RISPERDAL [Concomitant]
     Dates: start: 20060901

REACTIONS (1)
  - PANCREATITIS ACUTE [None]
